FAERS Safety Report 11579157 (Version 2)
Quarter: 2015Q4

REPORT INFORMATION
  Report Type: Report from Study
  Country: GT (occurrence: GT)
  Receive Date: 20150930
  Receipt Date: 20151013
  Transmission Date: 20160304
  Serious: Yes (Other)
  Sender: FDA-Public Use
  Company Number: GT-BAYER-2015-428645

PATIENT
  Age: 54 Year
  Sex: Male

DRUGS (7)
  1. STIVARGA [Suspect]
     Active Substance: REGORAFENIB
     Indication: COLON CANCER
     Dosage: 160 MG, QD
     Route: 048
     Dates: start: 20150722, end: 2015
  2. XELODA [Concomitant]
     Active Substance: CAPECITABINE
  3. INSULIN [Concomitant]
     Active Substance: INSULIN NOS
  4. OXYCODONE [Concomitant]
     Active Substance: OXYCODONE
     Dosage: UNK
  5. LYRICA [Concomitant]
     Active Substance: PREGABALIN
     Dosage: UNK
  6. MORPHINE [Concomitant]
     Active Substance: MORPHINE
     Dosage: UNK
  7. METFORMIN [Concomitant]
     Active Substance: METFORMIN HYDROCHLORIDE
     Dosage: UNK

REACTIONS (15)
  - Aphthous ulcer [None]
  - Urinary tract infection [Unknown]
  - Pain in extremity [None]
  - Mobility decreased [Unknown]
  - Dysphagia [None]
  - Skin fissures [None]
  - Blood urine present [Unknown]
  - Dysuria [Unknown]
  - Gait disturbance [None]
  - Pain [None]
  - Pharyngeal ulceration [None]
  - Oropharyngeal discomfort [None]
  - Skin reaction [Not Recovered/Not Resolved]
  - Haematochezia [None]
  - Headache [None]

NARRATIVE: CASE EVENT DATE: 201509
